FAERS Safety Report 20625710 (Version 1)
Quarter: 2022Q1

REPORT INFORMATION
  Report Type: Spontaneous
  Country: US (occurrence: None)
  Receive Date: 20220323
  Receipt Date: 20220323
  Transmission Date: 20220423
  Serious: No
  Sender: FDA-Public Use
  Company Number: US-ROCHE-2873578

PATIENT
  Sex: Female

DRUGS (9)
  1. ERIVEDGE [Suspect]
     Active Substance: VISMODEGIB
     Indication: Basal cell carcinoma
     Dosage: 1 CAPSULE BY MOUTH DAILY
     Route: 048
     Dates: start: 202106
  2. CARVEDILOL [Concomitant]
     Active Substance: CARVEDILOL
  3. DONEPEZIL [Concomitant]
     Active Substance: DONEPEZIL
  4. FENOFIBRATE [Concomitant]
     Active Substance: FENOFIBRATE
  5. OSCAL 500 [Concomitant]
     Dosage: OSCAL500/20 TAB 500-200M
  6. PANTOPRAZOLE [Concomitant]
     Active Substance: PANTOPRAZOLE
  7. PROMETHAZINE [Concomitant]
     Active Substance: PROMETHAZINE HYDROCHLORIDE
  8. RALOXIFENE [Concomitant]
     Active Substance: RALOXIFENE
  9. ASPIRIN [Concomitant]
     Active Substance: ASPIRIN

REACTIONS (3)
  - Fatigue [Not Recovered/Not Resolved]
  - Decreased appetite [Not Recovered/Not Resolved]
  - Vomiting [Not Recovered/Not Resolved]
